FAERS Safety Report 12914028 (Version 1)
Quarter: 2016Q4

REPORT INFORMATION
  Report Type: Spontaneous
  Country: US (occurrence: US)
  Receive Date: 20161105
  Receipt Date: 20161105
  Transmission Date: 20170207
  Serious: No
  Sender: FDA-Public Use
  Company Number: US-AUROBINDO-AUR-APL-2015-01314

PATIENT
  Age: 76 Year
  Sex: Female
  Weight: 56 kg

DRUGS (11)
  1. METOPROLOL TARTRATE TABLETS USP 50 MG [Suspect]
     Active Substance: METOPROLOL TARTRATE
     Indication: PRODUCT USED FOR UNKNOWN INDICATION
     Dosage: 50 MG, DAILY
     Route: 065
     Dates: start: 2015
  2. TIKOSYN [Suspect]
     Active Substance: DOFETILIDE
     Indication: ATRIAL FIBRILLATION
     Dosage: 125 ?G, UNK
     Route: 065
     Dates: start: 201412
  3. LEVOTHYROXINE. [Concomitant]
     Active Substance: LEVOTHYROXINE
     Indication: HYPOTHYROIDISM
     Dosage: 100 ?G, DAILY
     Route: 065
  4. TIKOSYN [Suspect]
     Active Substance: DOFETILIDE
     Dosage: 250 ?G, TWO TIMES A DAY
     Route: 048
     Dates: start: 20150128
  5. DILTIAZEM. [Suspect]
     Active Substance: DILTIAZEM
     Indication: HEART RATE INCREASED
     Dosage: 360 MG, DAILY
     Route: 065
  6. HYDRALAZINE [Concomitant]
     Active Substance: HYDRALAZINE HYDROCHLORIDE
     Indication: HYPERTENSION
     Dosage: 2 DF, 3 TIMES A DAY
     Route: 048
  7. FLEXERIL [Concomitant]
     Active Substance: CYCLOBENZAPRINE HYDROCHLORIDE
     Indication: ARTHRITIS
     Dosage: UNK, AS NECESSARY
     Route: 065
  8. TRAMADOL. [Concomitant]
     Active Substance: TRAMADOL
     Indication: PRODUCT USED FOR UNKNOWN INDICATION
     Dosage: UNK, AS NECESSARY
     Route: 065
  9. XANAX [Concomitant]
     Active Substance: ALPRAZOLAM
     Indication: PANIC ATTACK
     Dosage: 0.5 MG, UNK
     Route: 065
  10. DILTIAZEM. [Suspect]
     Active Substance: DILTIAZEM
     Indication: HYPERTENSION
     Dosage: 120 MG, TWO TIMES A DAY
     Route: 065
  11. PANTOPRAZOLE [Concomitant]
     Active Substance: PANTOPRAZOLE SODIUM
     Indication: DYSPHAGIA
     Dosage: UNK, DAILY
     Route: 065

REACTIONS (8)
  - Insomnia [Unknown]
  - Heart rate irregular [Unknown]
  - Pollakiuria [Unknown]
  - Anxiety [Not Recovered/Not Resolved]
  - Condition aggravated [Unknown]
  - Tremor [Unknown]
  - Fatigue [Not Recovered/Not Resolved]
  - Lethargy [Not Recovered/Not Resolved]

NARRATIVE: CASE EVENT DATE: 201502
